FAERS Safety Report 15242564 (Version 1)
Quarter: 2018Q3

REPORT INFORMATION
  Report Type: Spontaneous
  Country: US (occurrence: IL)
  Receive Date: 20180806
  Receipt Date: 20180806
  Transmission Date: 20181010
  Serious: Yes (Hospitalization)
  Sender: FDA-Public Use
  Company Number: IL-ROCHE-2150249

PATIENT
  Age: 42 Year
  Sex: Female

DRUGS (3)
  1. IMIPRAMINE [Suspect]
     Active Substance: IMIPRAMINE
     Indication: DEPRESSION
     Route: 048
  2. CLONAZEPAM. [Suspect]
     Active Substance: CLONAZEPAM
     Indication: DEPRESSION
     Route: 048
  3. ROMAZICON [Suspect]
     Active Substance: FLUMAZENIL
     Indication: OVERDOSE
     Dosage: IN INCREMENTS OF 0.25 MG/MIN FOR A TOTAL DOSE OF 1.0 MG
     Route: 042

REACTIONS (3)
  - Overdose [Unknown]
  - Unresponsive to stimuli [Recovered/Resolved]
  - Seizure [Recovered/Resolved]
